FAERS Safety Report 7459303-9 (Version None)
Quarter: 2011Q2

REPORT INFORMATION
  Report Type: 
  Country: None (occurrence: None)
  Receive Date: 20110505
  Receipt Date: 20110429
  Transmission Date: 20111010
  Serious: No
  Sender: FDA-Public Use
  Company Number: US-PFIZER INC-2011093186

PATIENT
  Sex: Female

DRUGS (3)
  1. CELEBREX [Suspect]
     Indication: JOINT SWELLING
     Dosage: 200 MG, 1X/DAY
     Route: 048
     Dates: start: 20110419
  2. METHOTREXATE [Concomitant]
     Indication: HEPATIC CIRRHOSIS
     Dosage: UNK
  3. OMEPRAZOLE [Concomitant]
     Dosage: UNK

REACTIONS (1)
  - MOUTH ULCERATION [None]
